FAERS Safety Report 8120189-0 (Version None)
Quarter: 2012Q1

REPORT INFORMATION
  Report Type: 
  Country: None (occurrence: None)
  Receive Date: 20120207
  Receipt Date: 20120130
  Transmission Date: 20120608
  Serious: Yes (Hospitalization)
  Sender: FDA-Public Use
  Company Number: US-BAYER-2011-068112

PATIENT
  Age: 20 Year
  Sex: Female
  Weight: 58.957 kg

DRUGS (5)
  1. YAZ [Suspect]
     Indication: CONTRACEPTION
     Dosage: UNK
     Route: 048
     Dates: start: 20080601, end: 20080801
  2. YASMIN [Suspect]
     Indication: CONTRACEPTION
     Dosage: UNK
     Route: 048
     Dates: start: 20080601, end: 20100101
  3. DROSPIRENONE AND ETHINYL ESTRADIOL [Suspect]
     Indication: CONTRACEPTION
     Dosage: UNK
     Route: 048
     Dates: start: 20080601, end: 20100101
  4. DROSPIRENONE AND ETHINYL ESTRADIOL [Suspect]
     Dosage: UNK
     Dates: start: 20080801, end: 20091201
  5. BUSPIRONE HCL [Concomitant]
     Indication: ANXIETY
     Dosage: 15 MG, PRN
     Route: 048
     Dates: start: 20080101

REACTIONS (5)
  - CHOLECYSTITIS ACUTE [None]
  - INJURY [None]
  - DEFORMITY [None]
  - GALLBLADDER DISORDER [None]
  - PAIN [None]
